FAERS Safety Report 13515205 (Version 1)
Quarter: 2017Q2

REPORT INFORMATION
  Report Type: Spontaneous
  Country: US (occurrence: US)
  Receive Date: 20170504
  Receipt Date: 20170504
  Transmission Date: 20170830
  Serious: No
  Sender: FDA-Public Use
  Company Number: US-TAIHO ONCOLOGY INC-EU-2017-00692

PATIENT
  Sex: Female

DRUGS (8)
  1. PERCOCET [Concomitant]
     Active Substance: ACETAMINOPHEN\OXYCODONE HYDROCHLORIDE
     Dosage: NI
  2. LONSURF [Suspect]
     Active Substance: TIPIRACIL HYDROCHLORIDE\TRIFLURIDINE
     Indication: COLON CANCER
     Route: 048
     Dates: start: 20170201
  3. METOCLOPRAMIDE HYDROCHLORIDE. [Concomitant]
     Active Substance: METOCLOPRAMIDE HYDROCHLORIDE
     Dosage: NI
  4. FOLIC ACID. [Concomitant]
     Active Substance: FOLIC ACID
     Dosage: NI
  5. OXYCONTIN [Concomitant]
     Active Substance: OXYCODONE HYDROCHLORIDE
     Dosage: NI
  6. ZOFRAN [Concomitant]
     Active Substance: ONDANSETRON HYDROCHLORIDE
     Dosage: NI
  7. TOLTERODINE L-TARTRATE [Concomitant]
     Active Substance: TOLTERODINE TARTRATE
     Dosage: NI
  8. OXYCODONE [Concomitant]
     Active Substance: OXYCODONE
     Dosage: NI

REACTIONS (3)
  - Decreased appetite [Unknown]
  - Food intolerance [Unknown]
  - Appetite disorder [Unknown]

NARRATIVE: CASE EVENT DATE: 2017
